FAERS Safety Report 17532925 (Version 1)
Quarter: 2020Q1

REPORT INFORMATION
  Report Type: Spontaneous
  Country: US (occurrence: US)
  Receive Date: 20200304
  Receipt Date: 20200304
  Transmission Date: 20200409
  Serious: Yes (Hospitalization)
  Sender: FDA-Public Use
  Company Number: None

PATIENT
  Age: 62 Year
  Sex: Male

DRUGS (10)
  1. GABAPENTIN. [Concomitant]
     Active Substance: GABAPENTIN
  2. NOVOLIN NOS [Concomitant]
     Active Substance: INSULIN HUMAN
  3. METOPROLOL. [Concomitant]
     Active Substance: METOPROLOL
  4. QUINAPRIL. [Concomitant]
     Active Substance: QUINAPRIL
  5. ELIQUIS [Concomitant]
     Active Substance: APIXABAN
  6. VICTOZA [Concomitant]
     Active Substance: LIRAGLUTIDE
  7. ESCITALOPRAM [Concomitant]
     Active Substance: ESCITALOPRAM OXALATE
  8. SPRYCEL [Suspect]
     Active Substance: DASATINIB
     Indication: CHRONIC MYELOID LEUKAEMIA
     Route: 048
     Dates: start: 20191106, end: 20200210
  9. ATORVASTATIN [Concomitant]
     Active Substance: ATORVASTATIN
  10. LANTUS [Concomitant]
     Active Substance: INSULIN GLARGINE

REACTIONS (4)
  - Blood potassium increased [None]
  - Weight decreased [None]
  - Therapy cessation [None]
  - Renal impairment [None]

NARRATIVE: CASE EVENT DATE: 20200210
